FAERS Safety Report 9164692 (Version 2)
Quarter: 2013Q1

REPORT INFORMATION
  Report Type: Spontaneous
  Country: GB (occurrence: GB)
  Receive Date: 20130315
  Receipt Date: 20130322
  Transmission Date: 20140127
  Serious: Yes (Disabling, Other)
  Sender: FDA-Public Use
  Company Number: GB-ABBOTT-13X-167-1063083-00

PATIENT
  Age: 35 Year
  Sex: Female

DRUGS (6)
  1. EPILIM [Suspect]
     Indication: EPILEPSY
     Route: 048
     Dates: start: 20000202
  2. EPILIM [Suspect]
     Route: 048
     Dates: start: 201302
  3. LAMOTRIGINE [Concomitant]
     Indication: PRODUCT USED FOR UNKNOWN INDICATION
     Dates: start: 20000202
  4. LANSOPRAZOLE [Concomitant]
     Indication: PRODUCT USED FOR UNKNOWN INDICATION
     Dates: start: 20060316
  5. NITRAZEPAM [Concomitant]
     Indication: PRODUCT USED FOR UNKNOWN INDICATION
  6. EPILIM [Concomitant]
     Indication: PRODUCT USED FOR UNKNOWN INDICATION

REACTIONS (13)
  - Mood altered [Unknown]
  - Abnormal dreams [Unknown]
  - Irritability [Unknown]
  - Paraesthesia [Unknown]
  - Tremor [Unknown]
  - Convulsion [Unknown]
  - Musculoskeletal stiffness [Unknown]
  - Joint lock [Unknown]
  - Urinary incontinence [Unknown]
  - Chest pain [Unknown]
  - Hypoaesthesia [Unknown]
  - Vomiting [Unknown]
  - Pain [Unknown]
